FAERS Safety Report 6255181-4 (Version None)
Quarter: 2009Q3

REPORT INFORMATION
  Report Type: 
  Country: None (occurrence: None)
  Receive Date: 20090702
  Receipt Date: 20090609
  Transmission Date: 20100115
  Serious: Yes (Other)
  Sender: FDA-Public Use
  Company Number: AU-PFIZER INC-2009224915

PATIENT

DRUGS (8)
  1. LIPITOR [Suspect]
     Dosage: 40 MG, 1X/DAY
  2. LIPITOR [Suspect]
     Dosage: 20 MG, 1X/DAY
  3. RANI 2 [Concomitant]
  4. PERINDOPRIL ERBUMINE [Concomitant]
  5. NORVASC [Concomitant]
  6. DIAFORMIN [Concomitant]
  7. DIAMICRON [Concomitant]
  8. PLAVIX [Concomitant]

REACTIONS (5)
  - ARTERIAL OCCLUSIVE DISEASE [None]
  - GAIT DISTURBANCE [None]
  - INVESTIGATION ABNORMAL [None]
  - MUSCLE SPASMS [None]
  - PAIN IN EXTREMITY [None]
